FAERS Safety Report 9233243 (Version 2)
Quarter: 2013Q2

REPORT INFORMATION
  Report Type: Spontaneous
  Country: US (occurrence: US)
  Receive Date: 20130416
  Receipt Date: 20130416
  Transmission Date: 20140414
  Serious: Yes (Other)
  Sender: FDA-Public Use
  Company Number: US-BANPHARM-20130535

PATIENT
  Sex: Female

DRUGS (1)
  1. NAPROXEN SODIUM 220MG [Suspect]
     Route: 048

REACTIONS (1)
  - Haematochezia [Unknown]
